FAERS Safety Report 9009617 (Version 1)
Quarter: 2013Q1

REPORT INFORMATION
  Report Type: Spontaneous
  Country: US (occurrence: US)
  Receive Date: 20130110
  Receipt Date: 20130110
  Transmission Date: 20140127
  Serious: Yes (Other)
  Sender: FDA-Public Use
  Company Number: US-009507513-1301USA002154

PATIENT
  Age: 3 Year
  Sex: Male

DRUGS (8)
  1. SINGULAIR [Suspect]
     Dosage: 4 MG, ON
  2. ALBUTEROL [Suspect]
     Dosage: INHALATION
     Route: 055
  3. BUDESONIDE [Suspect]
     Dosage: INHALATION
     Route: 055
  4. BENZALKONIUM CHLORIDE\OFLOXACIN\SODIUM CHLORIDE\SODIUM HYDROXIDE [Suspect]
  5. SALBUHEXAL [Suspect]
     Dosage: INHALATION
     Route: 055
  6. VIANI [Suspect]
     Dosage: 1 PUFF BID INHALATION
     Route: 055
  7. STUDY DRUG (UNSPECIFIED) [Concomitant]
     Dosage: INHALATION
     Route: 055
  8. ANTIMICROBIAL (UNSPECIFIED) [Concomitant]

REACTIONS (14)
  - Wheezing [Unknown]
  - Pyrexia [Unknown]
  - Personality change [Unknown]
  - Headache [Unknown]
  - Abdominal discomfort [Unknown]
  - Gastroenteritis viral [Unknown]
  - Formication [Unknown]
  - Expired drug administered [Unknown]
  - Eating disorder [Unknown]
  - Drug ineffective [Unknown]
  - Diarrhoea [Unknown]
  - Cough [Unknown]
  - Bronchospasm [Unknown]
  - Aggression [Unknown]
